FAERS Safety Report 9275449 (Version 1)
Quarter: 2013Q2

REPORT INFORMATION
  Report Type: Spontaneous
  Country: US (occurrence: US)
  Receive Date: 20130507
  Receipt Date: 20130507
  Transmission Date: 20140414
  Serious: No
  Sender: FDA-Public Use
  Company Number: US-PFIZER INC-2013139095

PATIENT
  Age: 83 Year
  Sex: Female
  Weight: 65.76 kg

DRUGS (1)
  1. XELJANZ [Suspect]
     Indication: RHEUMATOID ARTHRITIS
     Dosage: 5 MG, 2X/DAY
     Route: 048
     Dates: start: 20130426, end: 20130428

REACTIONS (6)
  - Drug hypersensitivity [Unknown]
  - Swelling face [Unknown]
  - Erythema [Unknown]
  - Lip swelling [Unknown]
  - Eye swelling [Unknown]
  - Local swelling [Unknown]
